FAERS Safety Report 10012786 (Version 2)
Quarter: 2014Q1

REPORT INFORMATION
  Report Type: Spontaneous
  Country: US (occurrence: US)
  Receive Date: 20140314
  Receipt Date: 20140317
  Transmission Date: 20141002
  Serious: Yes (Other)
  Sender: FDA-Public Use
  Company Number: CHPA2014US003767

PATIENT
  Age: 66 Year
  Sex: Female

DRUGS (1)
  1. VOLTAREN GEL [Suspect]
     Indication: ARTHRITIS
     Dosage: 2 G, BID
     Route: 061
     Dates: start: 20140307, end: 20140309

REACTIONS (7)
  - Palpitations [Recovering/Resolving]
  - Paraesthesia [Not Recovered/Not Resolved]
  - Local swelling [Not Recovered/Not Resolved]
  - Blister [Not Recovered/Not Resolved]
  - Erythema [Not Recovered/Not Resolved]
  - Pruritus [Not Recovered/Not Resolved]
  - Underdose [Unknown]
